FAERS Safety Report 6823750-6 (Version None)
Quarter: 2010Q3

REPORT INFORMATION
  Report Type: 
  Country: None (occurrence: None)
  Receive Date: 20100708
  Receipt Date: 20060911
  Transmission Date: 20110219
  Serious: No
  Sender: FDA-Public Use
  Company Number: US-PFIZER INC-2006110085

PATIENT
  Sex: Female
  Weight: 69.85 kg

DRUGS (12)
  1. CHANTIX [Suspect]
     Indication: SMOKING CESSATION THERAPY
     Dates: start: 20060101, end: 20060101
  2. OXYCONTIN [Concomitant]
  3. NORCO [Concomitant]
  4. FLEXERIL [Concomitant]
  5. GUAIFENESIN [Concomitant]
  6. NEXIUM [Concomitant]
  7. SOMA [Concomitant]
  8. ADVAIR DISKUS 100/50 [Concomitant]
  9. THEO-24 [Concomitant]
  10. SPIRIVA [Concomitant]
  11. AMBIEN [Concomitant]
  12. POLYETHYLENE GLYCOL [Concomitant]

REACTIONS (3)
  - ABDOMINAL DISCOMFORT [None]
  - FEELING ABNORMAL [None]
  - VOMITING [None]
